FAERS Safety Report 8159188-1 (Version None)
Quarter: 2012Q1

REPORT INFORMATION
  Report Type: 
  Country: None (occurrence: None)
  Receive Date: 20120223
  Receipt Date: 20120217
  Transmission Date: 20120608
  Serious: Yes (Hospitalization)
  Sender: FDA-Public Use
  Company Number: DE-GENZYME-RENA-1001457

PATIENT

DRUGS (5)
  1. RENVELA [Suspect]
     Indication: HYPERPHOSPHATAEMIA
     Dosage: 3 IN 3 DAYS
     Route: 048
     Dates: start: 20110801, end: 20110901
  2. CINACALCET HYDROCHLORIDE [Suspect]
     Indication: HYPERPARATHYROIDISM SECONDARY
     Dosage: 30 MG, QD
     Route: 048
     Dates: start: 20110801, end: 20110901
  3. FERROGLYCINE SULFATE COMPLEX [Concomitant]
     Indication: NEPHROGENIC ANAEMIA
     Dosage: UNK UNK, QD
     Route: 048
  4. ATACAND [Concomitant]
     Indication: HYPERTENSION
     Dosage: 4 MG, QD
     Route: 048
  5. LASIX [Concomitant]
     Indication: POLYURIA
     Dosage: 375 MG, QD
     Route: 065

REACTIONS (2)
  - GASTROOESOPHAGEAL REFLUX DISEASE [None]
  - DUODENAL ULCER [None]
